FAERS Safety Report 8921385 (Version 4)
Quarter: 2013Q2

REPORT INFORMATION
  Report Type: Spontaneous
  Country: GB (occurrence: GB)
  Receive Date: 20121122
  Receipt Date: 20130418
  Transmission Date: 20140414
  Serious: Yes (Other)
  Sender: FDA-Public Use
  Company Number: GB-AMGEN-GBRSP2012074549

PATIENT
  Age: 57 Year
  Sex: Female
  Weight: 70.5 kg

DRUGS (1)
  1. NPLATE [Suspect]
     Indication: IDIOPATHIC THROMBOCYTOPENIC PURPURA
     Dosage: 700 MUG, QWK
     Route: 058
     Dates: start: 20120710, end: 201212

REACTIONS (3)
  - Drug specific antibody present [Unknown]
  - Drug effect decreased [Unknown]
  - Gastrointestinal haemorrhage [Unknown]
